FAERS Safety Report 8102184-0 (Version None)
Quarter: 2012Q1

REPORT INFORMATION
  Report Type: 
  Country: None (occurrence: None)
  Receive Date: 20120201
  Receipt Date: 20120123
  Transmission Date: 20120608
  Serious: No
  Sender: FDA-Public Use
  Company Number: US-BIOGENIDEC-2011BI039737

PATIENT
  Age: 47 Year
  Sex: Female

DRUGS (4)
  1. LYRICA [Concomitant]
     Indication: FIBROMYALGIA
     Dates: start: 20110101
  2. CRESTOR [Concomitant]
     Indication: BLOOD TRIGLYCERIDES INCREASED
     Dates: start: 20070101
  3. AVONEX [Suspect]
     Indication: MULTIPLE SCLEROSIS
     Route: 030
     Dates: start: 20010901, end: 20010101
  4. AVONEX [Suspect]
     Route: 030
     Dates: start: 20110928

REACTIONS (3)
  - RENAL CYST [None]
  - CONTUSION [None]
  - PAIN [None]
